FAERS Safety Report 25935170 (Version 3)
Quarter: 2025Q4

REPORT INFORMATION
  Report Type: Spontaneous
  Country: US (occurrence: US)
  Receive Date: 20251017
  Receipt Date: 20251023
  Transmission Date: 20260118
  Serious: No
  Sender: BRISTOL-MYERS SQUIBB COMPANY
  Company Number: US-BRISTOL-MYERS SQUIBB COMPANY-2025-142296

PATIENT
  Age: 50 Year
  Sex: Male
  Weight: 79.38 kg

DRUGS (1)
  1. KENALOG-10 [Suspect]
     Active Substance: TRIAMCINOLONE ACETONIDE
     Indication: Intervertebral disc protrusion

REACTIONS (4)
  - Headache [Recovered/Resolved]
  - Muscle strength abnormal [Recovering/Resolving]
  - Blood glucose increased [Recovered/Resolved]
  - Off label use [Unknown]
